FAERS Safety Report 10179383 (Version 1)
Quarter: 2014Q2

REPORT INFORMATION
  Report Type: Spontaneous
  Country: US (occurrence: None)
  Receive Date: 20140416
  Receipt Date: 20140416
  Transmission Date: 20141212
  Serious: Yes (Other)
  Sender: FDA-Public Use
  Company Number: 163-POMAL-13103244

PATIENT
  Age: 66 Year
  Sex: Male
  Weight: 96 kg

DRUGS (2)
  1. POMALYST [Suspect]
     Indication: PLASMA CELL MYELOMA
     Dosage: 3 MG, 1 IN 1 D, PO
     Route: 048
     Dates: start: 20130308
  2. CYMBALTA [Concomitant]

REACTIONS (2)
  - Full blood count decreased [None]
  - Drug ineffective [None]
